FAERS Safety Report 21918401 (Version 2)
Quarter: 2023Q1

REPORT INFORMATION
  Report Type: Report from Study
  Country: US (occurrence: US)
  Receive Date: 20230127
  Receipt Date: 20230216
  Transmission Date: 20230418
  Serious: Yes (Hospitalization)
  Sender: FDA-Public Use
  Company Number: US-JNJFOC-20230141142

PATIENT
  Age: 12 Year
  Sex: Male

DRUGS (1)
  1. REMICADE [Suspect]
     Active Substance: INFLIXIMAB
     Indication: Crohn^s disease
     Route: 041

REACTIONS (6)
  - Weight decreased [Unknown]
  - Abdominal pain upper [Unknown]
  - Eating disorder [Unknown]
  - Adverse drug reaction [Unknown]
  - Laboratory test abnormal [Unknown]
  - Drug ineffective [Unknown]
